FAERS Safety Report 10661537 (Version 5)
Quarter: 2015Q1

REPORT INFORMATION
  Report Type: Spontaneous
  Country: JP (occurrence: JP)
  Receive Date: 20141218
  Receipt Date: 20150218
  Transmission Date: 20150720
  Serious: Yes (Hospitalization)
  Sender: FDA-Public Use
  Company Number: PHJP2014JP001381

PATIENT
  Age: 8 Year
  Sex: Male
  Weight: 26 kg

DRUGS (4)
  1. TEGRETOL [Suspect]
     Active Substance: CARBAMAZEPINE
     Indication: EPILEPSY
     Dosage: 105 MG, BID
     Route: 048
     Dates: start: 20110119, end: 20141112
  2. TEGRETOL [Interacting]
     Active Substance: CARBAMAZEPINE
     Dosage: 105 MG, BID
     Route: 048
     Dates: start: 20141205
  3. TEGRETOL [Interacting]
     Active Substance: CARBAMAZEPINE
     Dosage: 105 MG, BID
     Route: 048
     Dates: start: 20141113, end: 20141203
  4. DEPAKENE [Interacting]
     Active Substance: VALPROIC ACID
     Indication: EPILEPSY
     Dosage: 185 MG, BID
     Route: 048
     Dates: start: 20141113

REACTIONS (12)
  - Diarrhoea [Recovered/Resolved]
  - Dysgeusia [Recovered/Resolved]
  - Vomiting [Recovered/Resolved]
  - Depressed level of consciousness [Recovered/Resolved]
  - Anticonvulsant drug level increased [Unknown]
  - Overdose [Unknown]
  - Toxicity to various agents [Recovered/Resolved]
  - Dizziness [Recovered/Resolved]
  - Gastroenteritis [Recovered/Resolved]
  - Somnolence [Recovered/Resolved]
  - Drug dispensing error [Unknown]
  - Epilepsy [Recovered/Resolved]

NARRATIVE: CASE EVENT DATE: 20141122
